FAERS Safety Report 18091135 (Version 1)
Quarter: 2020Q3

REPORT INFORMATION
  Report Type: Spontaneous
  Country: US (occurrence: US)
  Receive Date: 20200729
  Receipt Date: 20200729
  Transmission Date: 20201103
  Serious: Yes (Hospitalization)
  Sender: FDA-Public Use
  Company Number: None

PATIENT
  Age: 50 Year
  Sex: Male

DRUGS (8)
  1. PANTOPRAZOLE [Concomitant]
     Active Substance: PANTOPRAZOLE
  2. CYCLOPHOSPHAMIDE 50MG [Suspect]
     Active Substance: CYCLOPHOSPHAMIDE
     Indication: ARTHRITIS
  3. METOPROLOL. [Concomitant]
     Active Substance: METOPROLOL
  4. TOLTERODINE [Concomitant]
     Active Substance: TOLTERODINE
  5. PREDNISONE. [Concomitant]
     Active Substance: PREDNISONE
  6. CYCLOSPHOSPH [Concomitant]
  7. SMZ [Concomitant]
     Active Substance: SULFAMETHOXAZOLE\TRIMETHOPRIM
  8. ALENDRONATE [Concomitant]
     Active Substance: ALENDRONATE SODIUM

REACTIONS (3)
  - Fatigue [None]
  - Dry mouth [None]
  - Balance disorder [None]
